FAERS Safety Report 7698796-9 (Version None)
Quarter: 2011Q3

REPORT INFORMATION
  Report Type: 
  Country: None (occurrence: None)
  Receive Date: 20110819
  Receipt Date: 20110805
  Transmission Date: 20111222
  Serious: Yes (Other)
  Sender: FDA-Public Use
  Company Number: GB-ARROW GEN-2011-12407

PATIENT
  Age: 19 Year
  Sex: Female

DRUGS (5)
  1. CO-AMOXICLAV                       /00756801/ [Concomitant]
     Indication: PRODUCT USED FOR UNKNOWN INDICATION
     Dosage: UNK
     Route: 065
  2. CITALOPRAM HYDROBROMIDE [Suspect]
     Dosage: 10 MG, UNKNOWN
     Route: 065
  3. CITALOPRAM HYDROBROMIDE [Suspect]
     Indication: DEPRESSION
     Dosage: 20 MG, UNK
     Route: 065
     Dates: start: 20110301, end: 20110712
  4. SOLPADEINE                         /01691501/ [Concomitant]
     Indication: PRODUCT USED FOR UNKNOWN INDICATION
     Route: 065
  5. MULTI-VITAMINS [Concomitant]
     Indication: PRODUCT USED FOR UNKNOWN INDICATION
     Route: 065

REACTIONS (5)
  - EMOTIONAL DISORDER [None]
  - PSYCHOMOTOR HYPERACTIVITY [None]
  - AGITATION [None]
  - LETHARGY [None]
  - MANIA [None]
